FAERS Safety Report 7481808-5 (Version None)
Quarter: 2011Q2

REPORT INFORMATION
  Report Type: 
  Country: None (occurrence: None)
  Receive Date: 20110516
  Receipt Date: 20110502
  Transmission Date: 20111010
  Serious: Yes (Hospitalization, Other)
  Sender: FDA-Public Use
  Company Number: US-ELI_LILLY_AND_COMPANY-US201009003345

PATIENT
  Sex: Female
  Weight: 65.76 kg

DRUGS (15)
  1. FORTEO [Suspect]
     Indication: OSTEOPOROSIS
     Dosage: 20 UG, DAILY (1/D)
     Route: 058
     Dates: start: 20100805
  2. HYDROCODONE BITARTRATE [Concomitant]
     Dosage: UNK, AS NEEDED
  3. DIGOXIN [Concomitant]
  4. COREG [Concomitant]
  5. FUROSEMIDE [Concomitant]
  6. MELPHALAN HYDROCHLORIDE [Concomitant]
  7. ACEON [Concomitant]
  8. FORTEO [Suspect]
     Dosage: 20 UG, DAILY (1/D)
     Route: 058
  9. POTASSIUM CHLORIDE [Concomitant]
  10. DIGOXIN [Concomitant]
     Dosage: UNK, 3/D
  11. PREVACID [Concomitant]
  12. COUMADIN [Concomitant]
  13. VITAMIN D [Concomitant]
     Dosage: UNK, 2/M
  14. VITAMIN B-12 [Concomitant]
     Dosage: UNK, 3/W
  15. KLOR-CON [Concomitant]

REACTIONS (4)
  - NAUSEA [None]
  - HIP FRACTURE [None]
  - FALL [None]
  - GAIT DISTURBANCE [None]
